FAERS Safety Report 6402568-2 (Version None)
Quarter: 2009Q4

REPORT INFORMATION
  Report Type: 
  Country: None (occurrence: None)
  Receive Date: 20091015
  Receipt Date: 20091005
  Transmission Date: 20100525
  Serious: Yes (Other)
  Sender: FDA-Public Use
  Company Number: IT-MERCK-0910USA01024

PATIENT
  Age: 67 Year
  Sex: Male

DRUGS (3)
  1. DECADRON [Suspect]
     Indication: BACK PAIN
     Route: 048
  2. THALIDOMIDE [Suspect]
     Indication: BACK PAIN
     Route: 065
  3. THALIDOMIDE [Suspect]
     Route: 065

REACTIONS (1)
  - AGRANULOCYTOSIS [None]
